FAERS Safety Report 8132845-9 (Version None)
Quarter: 2012Q1

REPORT INFORMATION
  Report Type: 
  Country: None (occurrence: None)
  Receive Date: 20120213
  Receipt Date: 20120202
  Transmission Date: 20120608
  Serious: Yes (Life-Threatening, Hospitalization)
  Sender: FDA-Public Use
  Company Number: JP-JNJFOC-20111202003

PATIENT
  Sex: Male
  Weight: 74 kg

DRUGS (19)
  1. HUMULIN INSULIN [Concomitant]
     Route: 058
  2. LIDOMEX [Concomitant]
     Route: 061
  3. USTEKINUMAB [Suspect]
     Indication: PSORIASIS
     Route: 058
     Dates: start: 20110706, end: 20110706
  4. ALLEGRA [Concomitant]
     Route: 048
  5. BETAMETHASONE BUTYRATE [Concomitant]
     Route: 061
  6. LEVEMIR [Concomitant]
     Route: 058
  7. REBAMIPIDE [Concomitant]
     Route: 048
  8. MICARDIS [Concomitant]
     Route: 048
  9. GLIMEPIRIDE [Concomitant]
     Route: 048
  10. BROTIZOLAM [Concomitant]
     Route: 048
  11. USTEKINUMAB [Suspect]
     Route: 058
     Dates: start: 20110803, end: 20110803
  12. CYCLOSPORINE [Concomitant]
  13. SENNOSIDE [Concomitant]
     Route: 048
  14. MECOBALAMIN [Concomitant]
     Route: 048
  15. LASIX [Concomitant]
     Route: 048
  16. INSULIN [Concomitant]
     Route: 058
  17. NEUROTROPIN [Concomitant]
     Route: 048
  18. HYDROCORTISONE BUTYRATE [Concomitant]
     Route: 061
  19. HEPARIN [Concomitant]
     Route: 061

REACTIONS (3)
  - GASTRIC ULCER [None]
  - EOSINOPHILIC PNEUMONIA [None]
  - CELLULITIS [None]
